FAERS Safety Report 6756728-1 (Version None)
Quarter: 2010Q2

REPORT INFORMATION
  Report Type: 
  Country: None (occurrence: None)
  Receive Date: 20100603
  Receipt Date: 20100603
  Transmission Date: 20101027
  Serious: No
  Sender: FDA-Public Use
  Company Number: None

PATIENT
  Sex: Male

DRUGS (1)
  1. HYDROCODONE BITARTRATE + ACETAMINOPHEN [Suspect]
     Indication: OSTEOARTHRITIS
     Dosage: 1 TABLET EVERY 6 HRS PO
     Route: 048
     Dates: start: 20090601, end: 20100602

REACTIONS (1)
  - DRUG INEFFECTIVE [None]
